FAERS Safety Report 15797471 (Version 1)
Quarter: 2019Q1

REPORT INFORMATION
  Report Type: Spontaneous
  Country: BR (occurrence: BR)
  Receive Date: 20190108
  Receipt Date: 20190108
  Transmission Date: 20190417
  Serious: Yes (Other)
  Sender: FDA-Public Use
  Company Number: BR-TORRENT-00004809

PATIENT
  Sex: Female

DRUGS (1)
  1. LAMOTRIGINE. [Suspect]
     Active Substance: LAMOTRIGINE
     Indication: PRODUCT USED FOR UNKNOWN INDICATION
     Route: 048
     Dates: start: 201810

REACTIONS (6)
  - Gaze palsy [Unknown]
  - Neck pain [Unknown]
  - Nausea [Not Recovered/Not Resolved]
  - Headache [Unknown]
  - Mydriasis [Unknown]
  - Malaise [Unknown]

NARRATIVE: CASE EVENT DATE: 201810
